FAERS Safety Report 8259722-7 (Version None)
Quarter: 2012Q2

REPORT INFORMATION
  Report Type: 
  Country: None (occurrence: None)
  Receive Date: 20120404
  Receipt Date: 20120329
  Transmission Date: 20120825
  Serious: Yes (Hospitalization)
  Sender: FDA-Public Use
  Company Number: JP-ABBOTT-12P-087-0897678-00

PATIENT
  Sex: Female

DRUGS (8)
  1. PREDNISOLONE [Concomitant]
     Indication: PRODUCT USED FOR UNKNOWN INDICATION
     Dates: start: 20100212
  2. METHOTREXATE [Concomitant]
     Indication: RHEUMATOID ARTHRITIS
     Route: 048
     Dates: start: 20100212
  3. FAMOTIDINE [Concomitant]
     Indication: GASTRIC ULCER
     Dates: start: 20100212
  4. ADRENAL HORMONE PREPARATIONS [Concomitant]
     Indication: RHEUMATOID ARTHRITIS
     Dosage: 5 MG DAILY
     Route: 048
     Dates: start: 20111001, end: 20120101
  5. METHOTREXATE [Concomitant]
     Route: 048
     Dates: start: 20100224
  6. HUMIRA [Suspect]
     Indication: RHEUMATOID ARTHRITIS
     Route: 058
     Dates: start: 20110810, end: 20111214
  7. METHOTREXATE [Concomitant]
     Route: 048
     Dates: start: 20110115, end: 20111224
  8. ISONIAZID [Concomitant]
     Indication: TUBERCULOSIS
     Route: 048
     Dates: start: 20100219, end: 20111013

REACTIONS (2)
  - LYMPH NODE TUBERCULOSIS [None]
  - NECK MASS [None]
